FAERS Safety Report 17284924 (Version 2)
Quarter: 2020Q1

REPORT INFORMATION
  Report Type: Other
  Country: US (occurrence: US)
  Receive Date: 20200117
  Receipt Date: 20200203
  Transmission Date: 20200409
  Serious: Yes (Hospitalization, Other)
  Sender: FDA-Public Use
  Company Number: US-AMAG PHARMACEUTICALS, INC.-AMAG201905624

PATIENT
  Age: 37 Year
  Sex: Female

DRUGS (2)
  1. MACROBID [Concomitant]
     Active Substance: NITROFURANTOIN\NITROFURANTOIN MONOHYDRATE
     Indication: CYSTITIS
  2. MAKENA [Suspect]
     Active Substance: HYDROXYPROGESTERONE CAPROATE
     Indication: PREMATURE DELIVERY
     Route: 030
     Dates: start: 20190927, end: 20191021

REACTIONS (1)
  - Premature delivery [Recovered/Resolved]

NARRATIVE: CASE EVENT DATE: 20191024
